FAERS Safety Report 10570025 (Version 2)
Quarter: 2015Q1

REPORT INFORMATION
  Report Type: Spontaneous
  Country: DE (occurrence: DE)
  Receive Date: 20141107
  Receipt Date: 20150223
  Transmission Date: 20150720
  Serious: Yes (Other)
  Sender: FDA-Public Use
  Company Number: DE-BIOGENIDEC-2014BI113509

PATIENT
  Age: 45 Year
  Sex: Female
  Weight: 56 kg

DRUGS (3)
  1. SIFROL [Concomitant]
     Active Substance: PRAMIPEXOLE
  2. TECFIDERA [Suspect]
     Active Substance: DIMETHYL FUMARATE
     Indication: RELAPSING-REMITTING MULTIPLE SCLEROSIS
     Route: 048
     Dates: start: 20140910, end: 20150123
  3. VISANNE [Concomitant]
     Active Substance: DIENOGEST

REACTIONS (3)
  - Flushing [Not Recovered/Not Resolved]
  - Nipple pain [Not Recovered/Not Resolved]
  - Depressed mood [Unknown]
